FAERS Safety Report 4509827-9 (Version None)
Quarter: 2004Q4

REPORT INFORMATION
  Report Type: 
  Country: None (occurrence: None)
  Receive Date: 20041119
  Receipt Date: 20041028
  Transmission Date: 20050328
  Serious: Yes (Other)
  Sender: FDA-Public Use
  Company Number: USA041082523

PATIENT
  Age: 15 Year
  Sex: Male

DRUGS (7)
  1. CYMBALTA [Suspect]
     Indication: FIBROMYALGIA
     Dosage: 30 MG DAY
     Dates: start: 20041008, end: 20041009
  2. EFFEXOR [Concomitant]
  3. PEPCID [Concomitant]
  4. TREXALL (METHOTREXATE SODIUM) [Concomitant]
  5. REMERON (MIRTAZAPINE ORIFARM) [Concomitant]
  6. FOLIC ACID [Concomitant]
  7. ZYRTEC [Concomitant]

REACTIONS (5)
  - DRUG ERUPTION [None]
  - HEADACHE [None]
  - PYREXIA [None]
  - THERAPY NON-RESPONDER [None]
  - VOMITING [None]
